FAERS Safety Report 25884547 (Version 2)
Quarter: 2025Q4

REPORT INFORMATION
  Report Type: Report from Study
  Country: US (occurrence: US)
  Receive Date: 20251006
  Receipt Date: 20251009
  Transmission Date: 20260117
  Serious: Yes (Other)
  Sender: ABBVIE
  Company Number: US-ABBVIE-6203260

PATIENT
  Age: 53 Year
  Sex: Female

DRUGS (2)
  1. SKYRIZI [Suspect]
     Active Substance: RISANKIZUMAB-RZAA
     Indication: Crohn^s disease
     Dosage: STOP DATE: 2023
     Route: 058
     Dates: start: 20230615
  2. SKYRIZI [Suspect]
     Active Substance: RISANKIZUMAB-RZAA
     Dosage: LAST ADMIN DATE 2023
     Route: 058
     Dates: start: 202310

REACTIONS (7)
  - Cartilage injury [Unknown]
  - Gait inability [Recovering/Resolving]
  - Arthralgia [Unknown]
  - Nausea [Unknown]
  - Joint swelling [Recovering/Resolving]
  - Myalgia [Unknown]
  - Dysstasia [Unknown]

NARRATIVE: CASE EVENT DATE: 20250725
